FAERS Safety Report 5379405-0 (Version None)
Quarter: 2007Q3

REPORT INFORMATION
  Report Type: 
  Country: None (occurrence: None)
  Receive Date: 20070703
  Receipt Date: 20070620
  Transmission Date: 20080115
  Serious: Yes (Other)
  Sender: FDA-Public Use
  Company Number: 2007S1005540

PATIENT
  Age: 60 Year
  Sex: Male
  Weight: 86.1834 kg

DRUGS (8)
  1. FENTANYL TRANSDERMAL SYSTEM [Suspect]
     Indication: ARTHRITIS
     Dosage: 50 UG/HR EVERY 3 DAYS; TRANSDERMAL
     Route: 062
     Dates: start: 20050201
  2. FENTANYL TRANSDERMAL SYSTEM [Suspect]
     Indication: PAIN
     Dosage: 50 UG/HR EVERY 3 DAYS; TRANSDERMAL
     Route: 062
     Dates: start: 20050201
  3. METHOCARBAMOL (CON.) [Concomitant]
  4. TOPROL XL (CON.) [Concomitant]
  5. HYDROCHLOORTHIAZIDE (CON.) [Concomitant]
  6. MIRAPEX (CON.) [Concomitant]
  7. SIMVASTATIN (CON.) [Concomitant]
  8. OMEPRAZOLE (CON.) [Concomitant]

REACTIONS (7)
  - DRUG WITHDRAWAL SYNDROME [None]
  - HYPERHIDROSIS [None]
  - HYPOAESTHESIA [None]
  - MUSCLE SPASMS [None]
  - PARAESTHESIA [None]
  - PHARMACEUTICAL PRODUCT COMPLAINT [None]
  - RESTLESSNESS [None]
